FAERS Safety Report 10713541 (Version 1)
Quarter: 2015Q1

REPORT INFORMATION
  Report Type: Spontaneous
  Country: TW (occurrence: TW)
  Receive Date: 20150115
  Receipt Date: 20150115
  Transmission Date: 20150721
  Serious: Yes (Hospitalization)
  Sender: FDA-Public Use
  Company Number: TW-PERRIGO-15TW000175

PATIENT
  Age: 47 Year
  Sex: Female

DRUGS (10)
  1. MIDAZOLAM HCL [Suspect]
     Active Substance: MIDAZOLAM HYDROCHLORIDE
     Indication: SUICIDE ATTEMPT
     Dosage: 120 MG, SINGLE
     Route: 048
  2. CLONAZEPAM. [Suspect]
     Active Substance: CLONAZEPAM
     Indication: SCHIZOPHRENIA, PARANOID TYPE
     Dosage: 2 MG, QD
     Route: 048
  3. TRIHEXYPHENIDYL [Suspect]
     Active Substance: TRIHEXYPHENIDYL
     Indication: SUICIDE ATTEMPT
     Dosage: 32 MG, SINGLE
     Route: 048
  4. MIDAZOLAM HCL [Suspect]
     Active Substance: MIDAZOLAM HYDROCHLORIDE
     Indication: SCHIZOPHRENIA, PARANOID TYPE
     Dosage: 7.5 MG, QD
     Route: 048
  5. RISPERIDONE. [Suspect]
     Active Substance: RISPERIDONE
     Indication: SUICIDE ATTEMPT
     Dosage: 96 MG, SINGLE
     Route: 048
  6. FLURAZEPAM [Suspect]
     Active Substance: FLURAZEPAM\FLURAZEPAM HYDROCHLORIDE
     Indication: SUICIDE ATTEMPT
     Dosage: 480 MG, SINGLE
     Route: 048
  7. CLONAZEPAM. [Suspect]
     Active Substance: CLONAZEPAM
     Indication: SUICIDE ATTEMPT
     Dosage: 32 MG, SINGLE
     Route: 048
  8. FLURAZEPAM [Suspect]
     Active Substance: FLURAZEPAM\FLURAZEPAM HYDROCHLORIDE
     Indication: SCHIZOPHRENIA, PARANOID TYPE
     Dosage: 30 MG, QD
     Route: 048
  9. TRIHEXYPHENIDYL [Suspect]
     Active Substance: TRIHEXYPHENIDYL
     Indication: SCHIZOPHRENIA, PARANOID TYPE
     Dosage: 2 MG, QD
     Route: 048
  10. RISPERIDONE. [Suspect]
     Active Substance: RISPERIDONE
     Indication: SCHIZOPHRENIA, PARANOID TYPE
     Dosage: 6 MG, QD
     Route: 048

REACTIONS (7)
  - Myoclonus [Recovered/Resolved]
  - Weight increased [Unknown]
  - Intentional overdose [Recovered/Resolved]
  - Rhabdomyolysis [Recovered/Resolved]
  - Suicide attempt [None]
  - Tachycardia [Recovered/Resolved]
  - Blood sodium decreased [None]
